FAERS Safety Report 21140518 (Version 2)
Quarter: 2023Q2

REPORT INFORMATION
  Report Type: Report from Study
  Country: IT (occurrence: IT)
  Receive Date: 20220728
  Receipt Date: 20230616
  Transmission Date: 20230721
  Serious: Yes (Other)
  Sender: FDA-Public Use
  Company Number: IT-SUN PHARMACEUTICAL INDUSTRIES LTD-2022RR-346224

PATIENT
  Age: 43 Year
  Sex: Female

DRUGS (8)
  1. OXALIPLATIN [Suspect]
     Active Substance: OXALIPLATIN
     Indication: K-ras gene mutation
     Dosage: UNK
     Route: 065
     Dates: start: 202001
  2. OXALIPLATIN [Suspect]
     Active Substance: OXALIPLATIN
     Indication: N-ras gene mutation
  3. IRINOTECAN [Suspect]
     Active Substance: IRINOTECAN
     Indication: K-ras gene mutation
     Dosage: UNK
     Route: 065
     Dates: start: 202001
  4. IRINOTECAN [Suspect]
     Active Substance: IRINOTECAN
     Indication: N-ras gene mutation
  5. BEVACIZUMAB [Suspect]
     Active Substance: BEVACIZUMAB
     Indication: K-ras gene mutation
     Dosage: UNK
     Route: 065
     Dates: start: 202001
  6. BEVACIZUMAB [Suspect]
     Active Substance: BEVACIZUMAB
     Indication: N-ras gene mutation
  7. FLUOROURACIL [Suspect]
     Active Substance: FLUOROURACIL
     Indication: K-ras gene mutation
     Dosage: UNK
     Route: 065
  8. FLUOROURACIL [Suspect]
     Active Substance: FLUOROURACIL
     Indication: N-ras gene mutation

REACTIONS (3)
  - Therapeutic product effect incomplete [Unknown]
  - Thrombocytopenia [Unknown]
  - Palmar-plantar erythrodysaesthesia syndrome [Unknown]
